FAERS Safety Report 7024236-9 (Version None)
Quarter: 2010Q4

REPORT INFORMATION
  Report Type: 
  Country: None (occurrence: None)
  Receive Date: 20101001
  Receipt Date: 20100919
  Transmission Date: 20110411
  Serious: Yes (Hospitalization, Other)
  Sender: FDA-Public Use
  Company Number: -MYLANLABS-2010S1017092

PATIENT
  Age: 19 Month
  Sex: Male

DRUGS (1)
  1. ENDEP [Suspect]
     Indication: OVERDOSE
     Route: 048
     Dates: start: 20100917, end: 20100917

REACTIONS (1)
  - ACCIDENTAL DRUG INTAKE BY CHILD [None]
